FAERS Safety Report 7884494-5 (Version None)
Quarter: 2011Q4

REPORT INFORMATION
  Report Type: 
  Country: None (occurrence: None)
  Receive Date: 20111102
  Receipt Date: 20111024
  Transmission Date: 20120403
  Serious: Yes (Life-Threatening, Hospitalization)
  Sender: FDA-Public Use
  Company Number: JP-GENZYME-THYM-1002857

PATIENT
  Sex: Female
  Weight: 24 kg

DRUGS (27)
  1. THYMOGLOBULIN [Suspect]
     Indication: BONE MARROW CONDITIONING REGIMEN
     Dosage: 60 MG, QD
     Route: 042
     Dates: start: 20110405, end: 20110406
  2. URSODIOL [Concomitant]
     Indication: PROPHYLAXIS
     Dosage: UNK
     Dates: start: 20110330, end: 20110623
  3. GRANISETRON HCL [Concomitant]
     Dosage: UNK
     Dates: start: 20110408, end: 20110410
  4. FLUDARABINE PHOSPHATE [Concomitant]
     Indication: MYELODYSPLASTIC SYNDROME
     Dosage: UNK
     Dates: start: 20110401, end: 20110405
  5. METHYLPREDNISOLONE SODIUM SUCCINATE [Concomitant]
     Indication: PROPHYLAXIS
     Dosage: UNK
     Dates: start: 20110405, end: 20110408
  6. IMMUNOGLOBULIN HUMAN NORMAL [Concomitant]
     Indication: ANTIVIRAL PROPHYLAXIS
     Dosage: UNK
     Dates: start: 20110405, end: 20110406
  7. HAPTOGLOBINS [Concomitant]
     Indication: PROPHYLAXIS
     Dosage: UNK
     Dates: start: 20110407, end: 20110407
  8. PREDNISOLONE ACETATE [Concomitant]
     Indication: PROPHYLAXIS AGAINST GRAFT VERSUS HOST DISEASE
     Dosage: UNK
     Dates: start: 20110409, end: 20110701
  9. GRANISETRON HCL [Concomitant]
     Indication: PROPHYLAXIS OF NAUSEA AND VOMITING
     Dosage: UNK
     Dates: start: 20110331, end: 20110408
  10. MIXED AMINO ACID PREPARATIONS FOR TOTAL PARENTERAL NUTRITION [Concomitant]
     Indication: PROPHYLAXIS
     Dosage: UNK
     Dates: start: 20110405, end: 20110831
  11. MULTIPLE VITAMIN FOR TOTAL PARENTERAL NUTRITION [Concomitant]
     Indication: VITAMIN SUPPLEMENTATION
     Dosage: UNK
     Dates: start: 20110405, end: 20110831
  12. FLUCONAZOLE [Concomitant]
     Indication: PROPHYLAXIS AGAINST GRAFT VERSUS HOST DISEASE
     Dosage: UNK
     Dates: start: 20110406, end: 20110627
  13. TOTAL BODY IRRADIATION [Concomitant]
     Indication: MYELODYSPLASTIC SYNDROME
     Dosage: UNK
     Dates: start: 20110331, end: 20110331
  14. SUCRALFATE [Concomitant]
     Indication: PROPHYLAXIS
     Dosage: UNK
     Dates: start: 20110501, end: 20110519
  15. SUCRALFATE [Concomitant]
     Dosage: UNK
     Dates: start: 20110330, end: 20110428
  16. CARBOCISTEINE [Concomitant]
     Indication: COUGH
     Dosage: UNK
     Dates: start: 20110610
  17. DALTEPARIN SODIUM [Concomitant]
     Indication: PROPHYLAXIS
     Dosage: UNK
     Dates: start: 20110830, end: 20110831
  18. METHOTREXATE [Concomitant]
     Indication: PROPHYLAXIS AGAINST GRAFT VERSUS HOST DISEASE
     Dosage: UNK
     Dates: start: 20110408, end: 20110519
  19. ACYCLOVIR [Concomitant]
     Dosage: UNK
     Dates: start: 20110406, end: 20110712
  20. SULFAMETHOPRIM [Concomitant]
     Indication: ANTIFUNGAL PROPHYLAXIS
     Dosage: UNK
     Dates: start: 20110415, end: 20110911
  21. MANGANESE CHLORIDE ZINC SULFATE COMBINED DRUG [Concomitant]
     Indication: MINERAL SUPPLEMENTATION
     Dosage: UNK
     Dates: start: 20110405, end: 20110830
  22. ANTITHROMBIN III HUMAN [Concomitant]
     Indication: PROPHYLAXIS
     Dosage: UNK
     Dates: start: 20110501, end: 20110522
  23. ACYCLOVIR [Concomitant]
     Indication: PROPHYLAXIS
     Dosage: UNK
     Dates: start: 20110330
  24. AMPHOTERICIN B [Concomitant]
     Indication: ANTIFUNGAL PROPHYLAXIS
     Dosage: UNK
     Dates: start: 20110501
  25. MELPHALAN HYDROCHLORIDE [Concomitant]
     Indication: MYELODYSPLASTIC SYNDROME
     Dosage: UNK
     Dates: start: 20110403, end: 20110404
  26. MICAFUNGIN SODIUM [Concomitant]
     Indication: ANTIFUNGAL PROPHYLAXIS
     Dosage: UNK
     Dates: start: 20110402, end: 20110901
  27. PH4 TREATED ACIDIC HUMAN NORMAL IMMUNOGLOBULIN [Concomitant]
     Indication: ANTIVIRAL PROPHYLAXIS
     Dosage: UNK
     Dates: start: 20110413, end: 20110506

REACTIONS (13)
  - GASTRITIS [None]
  - OEDEMA [None]
  - PANCREATITIS [None]
  - GRAFT VERSUS HOST DISEASE [None]
  - INSOMNIA [None]
  - BRONCHITIS [None]
  - FEBRILE NEUTROPENIA [None]
  - DIARRHOEA [None]
  - MUCOUS MEMBRANE DISORDER [None]
  - DEVICE OCCLUSION [None]
  - PLATELET COUNT DECREASED [None]
  - HYPERTENSION [None]
  - LIVER DISORDER [None]
